FAERS Safety Report 6086246-8 (Version None)
Quarter: 2009Q1

REPORT INFORMATION
  Report Type: 
  Country: None (occurrence: None)
  Receive Date: 20090220
  Receipt Date: 20090211
  Transmission Date: 20090719
  Serious: Yes (Other)
  Sender: FDA-Public Use
  Company Number: US-ABBOTT-09P-163-0503023-00

PATIENT
  Sex: Female

DRUGS (2)
  1. HUMIRA [Suspect]
     Indication: CROHN'S DISEASE
     Route: 058
     Dates: end: 20090211
  2. HUMIRA [Suspect]
     Indication: ARTHRITIS ENTEROPATHIC

REACTIONS (2)
  - SKIN LESION [None]
  - SQUAMOUS CELL CARCINOMA [None]
